FAERS Safety Report 7121593-X (Version None)
Quarter: 2010Q4

REPORT INFORMATION
  Report Type: 
  Country: None (occurrence: None)
  Receive Date: 20101124
  Receipt Date: 20101111
  Transmission Date: 20110411
  Serious: Yes (Hospitalization)
  Sender: FDA-Public Use
  Company Number: US-ELI_LILLY_AND_COMPANY-US201011003658

PATIENT
  Sex: Female

DRUGS (14)
  1. FORTEO [Suspect]
     Indication: OSTEOGENESIS IMPERFECTA
     Dosage: 20 UG, DAILY (1/D)
  2. EVISTA [Suspect]
     Dosage: 60 MG, DAILY (1/D)
  3. GABAPENTIN [Concomitant]
  4. LOVAZA [Concomitant]
  5. CARVEDILOL [Concomitant]
  6. FOLIC ACID [Concomitant]
  7. CYCLOBENAZPRINE [Concomitant]
  8. ALPRAZOLAM [Concomitant]
  9. WARFARIN [Concomitant]
  10. OMEPRAZOLE [Concomitant]
  11. DIGOXIN [Concomitant]
  12. PRAVASTATIN [Concomitant]
  13. HYDROCODONE [Concomitant]
  14. CELEBREX [Concomitant]

REACTIONS (3)
  - GAIT DISTURBANCE [None]
  - KNEE OPERATION [None]
  - MEDICATION ERROR [None]
